FAERS Safety Report 19104794 (Version 1)
Quarter: 2021Q2

REPORT INFORMATION
  Report Type: Report from Study
  Country: BR (occurrence: BR)
  Receive Date: 20210407
  Receipt Date: 20210407
  Transmission Date: 20210717
  Serious: Yes (Other)
  Sender: FDA-Public Use
  Company Number: BR-TAKEDA-2021TUS020932

PATIENT
  Age: 38 Year
  Sex: Male
  Weight: 76 kg

DRUGS (2)
  1. HEMO?8R [Suspect]
     Active Substance: ANTIHEMOPHILIC FACTOR, HUMAN RECOMBINANT
     Indication: FACTOR VIII DEFICIENCY
     Dosage: 2000 INTERNATIONAL UNIT, 3/WEEK
     Route: 042
     Dates: start: 20150414
  2. VENAFLON [Concomitant]
     Indication: HAEMORRHOIDS
     Dosage: 500 MILLIGRAM, QD
     Route: 065

REACTIONS (6)
  - Internal haemorrhage [Recovered/Resolved]
  - Swelling [Recovered/Resolved]
  - Haemorrhoids [Recovered/Resolved]
  - Depression [Recovered/Resolved]
  - Weight increased [Unknown]
  - Limb injury [Recovered/Resolved]

NARRATIVE: CASE EVENT DATE: 20210315
